FAERS Safety Report 4917095-9 (Version None)
Quarter: 2006Q1

REPORT INFORMATION
  Report Type: 
  Country: None (occurrence: None)
  Receive Date: 20060221
  Receipt Date: 20060208
  Transmission Date: 20060701
  Serious: Yes (Hospitalization)
  Sender: FDA-Public Use
  Company Number: PHRM2006FR00730

PATIENT
  Age: 67 Year
  Sex: Male

DRUGS (3)
  1. TAXOTERE [Concomitant]
     Indication: PROSTATE CANCER METASTATIC
     Dosage: 140 MG
  2. ESTRACYT [Concomitant]
     Indication: PROSTATE CANCER METASTATIC
     Dosage: 280 MG, TID
  3. ZOMETA [Suspect]
     Indication: METASTASES TO BONE
     Route: 042
     Dates: start: 20040101, end: 20060116

REACTIONS (3)
  - DENTAL CARE [None]
  - OSTEONECROSIS [None]
  - PAIN IN JAW [None]
